FAERS Safety Report 9867678 (Version 1)
Quarter: 2014Q1

REPORT INFORMATION
  Report Type: Spontaneous
  Country: US (occurrence: US)
  Receive Date: 20140204
  Receipt Date: 20140204
  Transmission Date: 20141002
  Serious: Yes (Other)
  Sender: FDA-Public Use
  Company Number: US-ASTRAZENECA-2014SE06230

PATIENT
  Age: 81 Year
  Sex: Female

DRUGS (2)
  1. BRILINTA [Suspect]
     Indication: STENT PLACEMENT
     Route: 048
     Dates: start: 20140114
  2. ASPIRIN [Concomitant]
     Dosage: 325

REACTIONS (1)
  - Thrombosis in device [Unknown]
